FAERS Safety Report 13114316 (Version 2)
Quarter: 2017Q1

REPORT INFORMATION
  Report Type: Spontaneous
  Country: US (occurrence: US)
  Receive Date: 20170113
  Receipt Date: 20170228
  Transmission Date: 20170428
  Serious: No
  Sender: FDA-Public Use
  Company Number: US-009507513-1701USA003080

PATIENT
  Sex: Male

DRUGS (20)
  1. COLACE [Concomitant]
     Active Substance: DOCUSATE SODIUM
     Dosage: 1/2 DF, QD
     Route: 048
     Dates: start: 20121217
  2. ADVIL [Concomitant]
     Active Substance: IBUPROFEN
     Indication: ARTHRALGIA
     Dosage: 1 DF, PRN
     Route: 048
     Dates: start: 20140106
  3. VITAMINS (UNSPECIFIED) [Concomitant]
     Active Substance: VITAMINS
     Dosage: UNK, QD
     Route: 048
     Dates: start: 20120611
  4. TEGRETOL [Concomitant]
     Active Substance: CARBAMAZEPINE
     Dosage: 200 MG, BID, AT 2 AM AND 2 PM
     Route: 048
  5. OMEPRAZOLE. [Concomitant]
     Active Substance: OMEPRAZOLE
     Dosage: 1 DF, UNK
     Route: 048
     Dates: start: 20121001
  6. POTASSIUM CHLORIDE. [Concomitant]
     Active Substance: POTASSIUM CHLORIDE
     Dosage: 10 MEQ CAPSULE EXTENDED RELEASE, BID
     Route: 048
     Dates: start: 20140106
  7. SINEMET [Suspect]
     Active Substance: CARBIDOPA\LEVODOPA
     Indication: PARKINSON^S DISEASE
     Dosage: 2 TABLETS, THREE TIMES A DAY
     Route: 048
  8. NITROSTAT [Suspect]
     Active Substance: NITROGLYCERIN
     Dosage: 0.4 MG,Q15MIN AT ONSET OF CP MAY REPEAT?2 SL
     Route: 060
     Dates: start: 20120511
  9. OMEGA-3 MARINE TRIGLYCERIDES [Concomitant]
     Active Substance: FISH OIL
     Dosage: UNK UNK, QD
     Route: 048
     Dates: start: 20130123
  10. LYRICA [Suspect]
     Active Substance: PREGABALIN
     Dosage: 1 DF, BID
     Route: 048
     Dates: start: 20120110
  11. ZONEGRAN [Concomitant]
     Active Substance: ZONISAMIDE
     Dosage: 2 DF, QPM
     Route: 048
     Dates: start: 20110919
  12. METOPROLOL SUCCINATE. [Concomitant]
     Active Substance: METOPROLOL SUCCINATE
     Dosage: 1 DF, QD
     Route: 048
     Dates: start: 20121108
  13. FUROSEMIDE. [Concomitant]
     Active Substance: FUROSEMIDE
     Dosage: 1 DF, QD
     Route: 048
     Dates: start: 20120806
  14. ASPIR-81 [Concomitant]
     Active Substance: ASPIRIN
     Dosage: 1 DF, QD
     Route: 048
  15. LOTRISONE [Concomitant]
     Active Substance: BETAMETHASONE DIPROPIONATE\CLOTRIMAZOLE
     Dosage: 1-0.05% CREAM, APPLY SPARINGLY
     Dates: start: 20110314
  16. ZOCOR [Concomitant]
     Active Substance: SIMVASTATIN
     Dosage: 1 DF, HS
     Route: 048
     Dates: start: 20121126
  17. VITAMIN B COMPLEX [Concomitant]
     Active Substance: CYANOCOBALAMIN\DEXPANTHENOL\NIACINAMIDE\PYRIDOXINE HYDROCHLORIDE\RIBOFLAVIN 5^-PHOSPHATE SODIUM\THIAMINE HYDROCHLORIDE\VITAMIN B COMPLEX
     Dosage: UNK, QD
     Route: 048
     Dates: start: 20120611
  18. NIZORAL [Concomitant]
     Active Substance: KETOCONAZOLE
     Dosage: 1 %, UNK
     Route: 061
     Dates: start: 20100322
  19. SYNTHROID [Concomitant]
     Active Substance: LEVOTHYROXINE SODIUM
     Dosage: TAKE 88MCG ORALLY EVERY MORNING, QD
     Dates: start: 20120611
  20. LISINOPRIL. [Concomitant]
     Active Substance: LISINOPRIL
     Dosage: 2.51 DF, QD
     Route: 048
     Dates: start: 20130122

REACTIONS (8)
  - Memory impairment [Unknown]
  - Sedation [Unknown]
  - Blood pressure orthostatic abnormal [Unknown]
  - Gait disturbance [Unknown]
  - Depression [Unknown]
  - Bradyphrenia [Unknown]
  - Dyskinesia [Unknown]
  - Anxiety [Unknown]
